FAERS Safety Report 6764681-X (Version None)
Quarter: 2010Q2

REPORT INFORMATION
  Report Type: 
  Country: None (occurrence: None)
  Receive Date: 20100609
  Receipt Date: 20100505
  Transmission Date: 20101027
  Serious: No
  Sender: FDA-Public Use
  Company Number: 2010010764

PATIENT
  Age: 5 Year
  Sex: Male
  Weight: 20.4119 kg

DRUGS (2)
  1. CHILDREN'S ZYRTEC ALLERGY [Suspect]
     Indication: HYPERSENSITIVITY
     Dosage: 1 TEASPOONFUL ONCE DAILY,ORAL
     Route: 048
  2. FLUTICASONE PROPIONATE [Concomitant]

REACTIONS (3)
  - FATIGUE [None]
  - OFF LABEL USE [None]
  - PRODUCT QUALITY ISSUE [None]
